FAERS Safety Report 19633505 (Version 1)
Quarter: 2021Q3

REPORT INFORMATION
  Report Type: Spontaneous
  Country: US (occurrence: US)
  Receive Date: 20210729
  Receipt Date: 20210729
  Transmission Date: 20211014
  Serious: No
  Sender: FDA-Public Use
  Company Number: US-PERRIGO-20US010090

PATIENT
  Sex: Male

DRUGS (3)
  1. MINOXIDIL. [Suspect]
     Active Substance: MINOXIDIL
     Indication: PRODUCT USED FOR UNKNOWN INDICATION
     Dosage: UNKNOWN, UNKNOWN
     Route: 061
     Dates: start: 202003, end: 202006
  2. MINOXIDIL. [Suspect]
     Active Substance: MINOXIDIL
     Dosage: UNKNOWN, UNKNOWN
     Route: 061
     Dates: start: 202007, end: 202007
  3. MINOXIDIL. [Suspect]
     Active Substance: MINOXIDIL
     Dosage: UNKNOWN, TWICE WEEKLY
     Route: 061
     Dates: start: 202006, end: 202006

REACTIONS (6)
  - Inappropriate schedule of product administration [Recovered/Resolved]
  - Alopecia [Unknown]
  - Application site pruritus [Unknown]
  - Application site pain [Unknown]
  - Application site irritation [Unknown]
  - Application site dryness [Unknown]

NARRATIVE: CASE EVENT DATE: 202006
